FAERS Safety Report 8163270-2 (Version None)
Quarter: 2012Q1

REPORT INFORMATION
  Report Type: 
  Country: None (occurrence: None)
  Receive Date: 20120224
  Receipt Date: 20110425
  Transmission Date: 20120608
  Serious: No
  Sender: FDA-Public Use
  Company Number: US-PFIZER INC-K201100493

PATIENT
  Sex: Male
  Weight: 108.84 kg

DRUGS (5)
  1. LYRICA [Concomitant]
     Indication: PAIN
     Dosage: UNK
  2. MILNACIPRAN [Concomitant]
     Indication: PAIN
     Dosage: UNK
  3. CELEBREX [Concomitant]
     Indication: PAIN
     Dosage: UNK
  4. FLECTOR [Suspect]
     Indication: ARTHRALGIA
     Dosage: 1 PATCH EVERY NIGHT
     Route: 061
     Dates: start: 20110405
  5. FLECTOR [Suspect]
     Indication: BACK PAIN

REACTIONS (1)
  - DRUG INEFFECTIVE [None]
